FAERS Safety Report 5200878-8 (Version None)
Quarter: 2007Q1

REPORT INFORMATION
  Report Type: 
  Country: None (occurrence: None)
  Receive Date: 20070108
  Receipt Date: 20070102
  Transmission Date: 20070707
  Serious: Yes (Hospitalization)
  Sender: FDA-Public Use
  Company Number: DE-AVENTIS-200612913DE

PATIENT
  Age: 27 Year
  Sex: Female

DRUGS (1)
  1. CLEXANE [Suspect]
     Indication: THROMBOSIS
     Route: 058

REACTIONS (2)
  - ABORTION INDUCED [None]
  - DRUG EXPOSURE DURING PREGNANCY [None]
